FAERS Safety Report 20150978 (Version 2)
Quarter: 2022Q1

REPORT INFORMATION
  Report Type: Report from Study
  Country: KR (occurrence: KR)
  Receive Date: 20211206
  Receipt Date: 20220124
  Transmission Date: 20220423
  Serious: Yes (Hospitalization)
  Sender: FDA-Public Use
  Company Number: KR-NOVARTISPH-NVSC2021KR275931

PATIENT
  Age: 43 Year
  Sex: Female
  Weight: 79 kg

DRUGS (7)
  1. GOSERELIN [Suspect]
     Active Substance: GOSERELIN
     Indication: HER2 negative breast cancer
     Dosage: 3.6 MG, QMO
     Route: 058
     Dates: start: 20200707
  2. MOTILIDONE [Concomitant]
     Indication: Nausea
     Dosage: 30 MG, QD
     Route: 048
     Dates: start: 20210902
  3. NOLTEC [Concomitant]
     Indication: Abdominal pain upper
     Dosage: 10 MG, QD
     Route: 048
     Dates: start: 20210824
  4. GASTIN [Concomitant]
     Indication: Abdominal pain upper
     Dosage: 15 MG, QD
     Route: 048
     Dates: start: 20210824
  5. CALCIUM POLYCARBOPHIL [Concomitant]
     Active Substance: CALCIUM POLYCARBOPHIL
     Indication: Constipation
     Dosage: 625 MG, QD
     Route: 048
     Dates: start: 20210824
  6. STILLEN [Concomitant]
     Indication: Nausea
     Dosage: 90 MG, QD
     Route: 048
     Dates: start: 20210926
  7. CELEBREX [Concomitant]
     Active Substance: CELECOXIB
     Indication: Myalgia
     Dosage: 200 MG, QD
     Route: 048
     Dates: start: 20210721

REACTIONS (1)
  - Lymphoedema [Recovered/Resolved]

NARRATIVE: CASE EVENT DATE: 20211115
